FAERS Safety Report 4900671-7 (Version None)
Quarter: 2006Q1

REPORT INFORMATION
  Report Type: 
  Country: None (occurrence: None)
  Receive Date: 20060203
  Receipt Date: 20060130
  Transmission Date: 20060701
  Serious: Yes (Hospitalization)
  Sender: FDA-Public Use
  Company Number: US-JNJFOC-20051202071

PATIENT
  Age: 49 Year
  Sex: Female

DRUGS (15)
  1. EXTRA STRENGTH TYLENOL [Suspect]
  2. EXTRA STRENGTH TYLENOL [Suspect]
     Indication: DRUG USE FOR UNKNOWN INDICATION
  3. TYLENOL (CAPLET) [Suspect]
     Route: 048
  4. TYLENOL (CAPLET) [Suspect]
     Indication: DRUG USE FOR UNKNOWN INDICATION
     Route: 048
  5. MOTRIN IB [Suspect]
     Route: 048
  6. MOTRIN IB [Suspect]
     Indication: DRUG USE FOR UNKNOWN INDICATION
     Dosage: 200 MG DOSAGE FORM (2 AT ONE TIME)
     Route: 048
  7. FENTANYL [Concomitant]
  8. ZELNORM [Concomitant]
  9. VICODIN [Concomitant]
  10. VICODIN [Concomitant]
  11. REGLAN [Concomitant]
  12. ESTROGEN [Concomitant]
  13. ACIPHEX [Concomitant]
  14. VERAPAMIL [Concomitant]
  15. IMODIUM [Concomitant]

REACTIONS (4)
  - ALANINE AMINOTRANSFERASE INCREASED [None]
  - ASPARTATE AMINOTRANSFERASE INCREASED [None]
  - BLOOD ALKALINE PHOSPHATASE INCREASED [None]
  - GAMMA-GLUTAMYLTRANSFERASE INCREASED [None]
